FAERS Safety Report 4291492-X (Version None)
Quarter: 2004Q1

REPORT INFORMATION
  Report Type: 
  Country: None (occurrence: None)
  Receive Date: 20040211
  Receipt Date: 20030228
  Transmission Date: 20041129
  Serious: No
  Sender: FDA-Public Use
  Company Number: US-BRISTOL-MYERS SQUIBB COMPANY-12198115

PATIENT
  Sex: Female

DRUGS (1)
  1. CEFZIL [Suspect]
     Indication: INFECTION
     Dates: start: 20030221, end: 20030222

REACTIONS (1)
  - VOMITING [None]
